FAERS Safety Report 17048246 (Version 1)
Quarter: 2019Q4

REPORT INFORMATION
  Report Type: Spontaneous
  Country: US (occurrence: US)
  Receive Date: 20191119
  Receipt Date: 20191119
  Transmission Date: 20200122
  Serious: Yes (Death, Other)
  Sender: FDA-Public Use
  Company Number: US-PFIZER INC-2019499558

PATIENT
  Sex: Female

DRUGS (1)
  1. TAFAMIDIS [Suspect]
     Active Substance: TAFAMIDIS MEGLUMINE
     Indication: CARDIAC AMYLOIDOSIS
     Dosage: 80 MG, 1X/DAY

REACTIONS (4)
  - Cardiac failure [Fatal]
  - Bronchospasm [Unknown]
  - Pruritus [Unknown]
  - Drug hypersensitivity [Unknown]
